FAERS Safety Report 15884901 (Version 3)
Quarter: 2019Q1

REPORT INFORMATION
  Report Type: Spontaneous
  Country: DE (occurrence: DE)
  Receive Date: 20190129
  Receipt Date: 20190306
  Transmission Date: 20190417
  Serious: Yes (Death)
  Sender: FDA-Public Use
  Company Number: DE-NATCO PHARMA-2019NAT00005

PATIENT

DRUGS (1)
  1. AZACITIDINE. [Suspect]
     Active Substance: AZACITIDINE
     Dosage: 75 MG/M2, 1X/DAY, ON DAYS 1 THROUGH 7 OF A 29-DAY CYCLE
     Route: 058

REACTIONS (2)
  - Infection [Fatal]
  - Neutropenia [Fatal]
